FAERS Safety Report 4691244-2 (Version None)
Quarter: 2005Q2

REPORT INFORMATION
  Report Type: 
  Country: None (occurrence: None)
  Receive Date: 20050614
  Receipt Date: 20050601
  Transmission Date: 20051028
  Serious: Yes (Hospitalization)
  Sender: FDA-Public Use
  Company Number: 2005082598

PATIENT
  Age: 92 Year
  Sex: Male
  Weight: 63.5036 kg

DRUGS (2)
  1. ARTHROTEC [Suspect]
     Indication: ARTHRITIS
     Dosage: 150 MG (75 MG, 2 IN 1 D)
     Dates: start: 20050519, end: 20050501
  2. MULTIVITAMIN [Concomitant]

REACTIONS (2)
  - HAEMOPTYSIS [None]
  - PYREXIA [None]
